FAERS Safety Report 16225395 (Version 1)
Quarter: 2019Q2

REPORT INFORMATION
  Report Type: Spontaneous
  Country: US (occurrence: US)
  Receive Date: 20190422
  Receipt Date: 20190422
  Transmission Date: 20190711
  Serious: Yes (Hospitalization)
  Sender: FDA-Public Use
  Company Number: US-PFIZER INC-2019166405

PATIENT
  Sex: Female
  Weight: 67 kg

DRUGS (6)
  1. PREDNISONE. [Concomitant]
     Active Substance: PREDNISONE
     Dosage: 2.5 MG, 1X/DAY
     Route: 048
     Dates: start: 200808
  2. RAPAMUNE [Suspect]
     Active Substance: SIROLIMUS
     Indication: RENAL TRANSPLANT
     Dosage: UNK (TOOK IT 6 TIMES A DAY)
     Route: 048
  3. RAPAMUNE [Suspect]
     Active Substance: SIROLIMUS
     Dosage: 3 MG, DAILY (3 ONE MG TABLETS IN THE MORNING )
     Route: 048
  4. TACROLIMUS. [Concomitant]
     Active Substance: TACROLIMUS
     Indication: RENAL TRANSPLANT
     Dosage: 6 MG, DAILY (3 CAPSULES IN AM, 3 AT NIGHT, 1MG EACH, BY MOUTH)
     Route: 048
     Dates: start: 200808
  5. PREDNISONE. [Concomitant]
     Active Substance: PREDNISONE
     Indication: TRANSPLANT
     Dosage: 60 MG, UNK
  6. RAPAMUNE [Suspect]
     Active Substance: SIROLIMUS
     Dosage: UNK UNK, DAILY
     Route: 048

REACTIONS (5)
  - Off label use [Not Recovered/Not Resolved]
  - Infection [Unknown]
  - Eating disorder [Unknown]
  - Drug intolerance [Unknown]
  - Blister [Unknown]
